FAERS Safety Report 4848686-1 (Version None)
Quarter: 2005Q4

REPORT INFORMATION
  Report Type: 
  Country: None (occurrence: None)
  Receive Date: 20051206
  Receipt Date: 20051118
  Transmission Date: 20060501
  Serious: Yes (Hospitalization)
  Sender: FDA-Public Use
  Company Number: ES200511002833

PATIENT
  Age: 23 Year
  Sex: Male
  Weight: 82 kg

DRUGS (4)
  1. ZYPREXA [Suspect]
     Indication: MANIA
     Dosage: 20 MG, DAILY (1/D), ORAL
     Route: 048
     Dates: start: 20050927, end: 20051014
  2. DORKEN (4-AMINO-3-HYDORXYBUTYRIC ACID, CLORAZEPATE DIPOTASSIUM, PYRIDO [Concomitant]
  3. SINOGAN (LEVOMEPROMAZINE) [Concomitant]
  4. AKINETON /AUS/ (BIPERIDEN HYDROCHLORIDE) [Concomitant]

REACTIONS (4)
  - CONDITION AGGRAVATED [None]
  - INCREASED APPETITE [None]
  - PSYCHOMOTOR HYPERACTIVITY [None]
  - URINARY INCONTINENCE [None]
